FAERS Safety Report 5916680-5 (Version None)
Quarter: 2008Q4

REPORT INFORMATION
  Report Type: 
  Country: None (occurrence: None)
  Receive Date: 20081013
  Receipt Date: 20080929
  Transmission Date: 20090506
  Serious: Yes (Hospitalization)
  Sender: FDA-Public Use
  Company Number: CA-AVENTIS-200819578GDDC

PATIENT
  Age: 62 Year
  Sex: Female
  Weight: 80.5 kg

DRUGS (7)
  1. GLIMEPIRIDE [Suspect]
     Route: 048
     Dates: start: 20051202
  2. LIPITOR [Concomitant]
     Dates: start: 19960101
  3. GLUCOPHAGE [Concomitant]
  4. ASPIRIN [Concomitant]
     Dates: start: 19930101
  5. CALCIUM [Concomitant]
     Dates: start: 19930101
  6. MAGNESIUM SULFATE [Concomitant]
     Dates: start: 19960101
  7. VIT D [Concomitant]
     Dates: start: 20030101

REACTIONS (5)
  - ABDOMINAL PAIN UPPER [None]
  - DYSPNOEA [None]
  - GASTRITIS [None]
  - NAUSEA [None]
  - NON-CARDIAC CHEST PAIN [None]
